FAERS Safety Report 9383453 (Version 2)
Quarter: 2013Q3

REPORT INFORMATION
  Report Type: Spontaneous
  Country: US (occurrence: US)
  Receive Date: 20130704
  Receipt Date: 20130723
  Transmission Date: 20140515
  Serious: Yes (Other)
  Sender: FDA-Public Use
  Company Number: US-PFIZER INC-2013197477

PATIENT
  Age: 65 Year
  Sex: Male
  Weight: 87.98 kg

DRUGS (9)
  1. CELEBREX [Suspect]
     Indication: SPONDYLITIS
     Dosage: 100 MG, 1X/DAY
     Route: 048
  2. CELEBREX [Interacting]
     Indication: MUSCLE SPASMS
     Dosage: 200 MG DAILY
     Route: 048
     Dates: start: 201302, end: 201302
  3. CELEBREX [Interacting]
     Indication: ARTHRITIS
     Dosage: 200MG DAILY
     Route: 048
     Dates: start: 201306
  4. CELEBREX [Interacting]
     Dosage: UNK
     Dates: start: 201302
  5. DILANTIN [Interacting]
     Indication: CONVULSION
     Dosage: 200 MG, 2X/DAY
  6. DILANTIN [Interacting]
     Indication: EPILEPSY
     Dosage: 100 MG, UNK
  7. METFORMIN HCL [Suspect]
     Indication: DIABETES MELLITUS
     Dosage: UNK
  8. GLIPIZIDE [Suspect]
     Indication: DIABETES MELLITUS
     Dosage: UNK
  9. SITAGLIPTIN [Concomitant]
     Indication: BLOOD CHOLESTEROL ABNORMAL
     Dosage: UNK

REACTIONS (4)
  - Visual acuity reduced [Unknown]
  - Drug ineffective [Unknown]
  - Dyspepsia [Unknown]
  - Drug interaction [Unknown]
